FAERS Safety Report 10196526 (Version 1)
Quarter: 2014Q2

REPORT INFORMATION
  Report Type: Spontaneous
  Country: US (occurrence: US)
  Receive Date: 20140527
  Receipt Date: 20140527
  Transmission Date: 20141212
  Serious: Yes (Other)
  Sender: FDA-Public Use
  Company Number: US-SA-2014SA066191

PATIENT
  Age: 52 Year
  Sex: Male

DRUGS (2)
  1. AFLIBERCEPT [Suspect]
     Indication: AGE-RELATED MACULAR DEGENERATION
     Dosage: 10 MONTHLY INJECTION
     Route: 031
  2. RANIBIZUMAB [Suspect]
     Indication: AGE-RELATED MACULAR DEGENERATION
     Dosage: 10 MONTHLY INJECTION
     Route: 031

REACTIONS (4)
  - Renal impairment [Unknown]
  - Off label use [Unknown]
  - Proteinuria [Unknown]
  - Renal injury [Unknown]
